FAERS Safety Report 4662295-9 (Version None)
Quarter: 2005Q2

REPORT INFORMATION
  Report Type: 
  Country: None (occurrence: None)
  Receive Date: 20050516
  Receipt Date: 20050506
  Transmission Date: 20051028
  Serious: Yes (Hospitalization)
  Sender: FDA-Public Use
  Company Number: 200513776CDDC

PATIENT
  Age: 51 Year
  Sex: Male

DRUGS (3)
  1. NICODERM [Suspect]
     Indication: EX-SMOKER
     Dosage: 21MG PER DAY
     Route: 062
     Dates: start: 20050216, end: 20050301
  2. NICORETTE INHALER [Suspect]
     Route: 055
  3. ATORVASTATIN CALCIUM [Concomitant]
     Indication: HYPERCHOLESTEROLAEMIA

REACTIONS (4)
  - BLOOD CHOLESTEROL INCREASED [None]
  - FEELING ABNORMAL [None]
  - INTENTIONAL MISUSE [None]
  - MYOCARDIAL INFARCTION [None]
